FAERS Safety Report 7421520-1 (Version None)
Quarter: 2011Q2

REPORT INFORMATION
  Report Type: 
  Country: None (occurrence: None)
  Receive Date: 20110418
  Receipt Date: 20110407
  Transmission Date: 20111010
  Serious: Yes (Hospitalization)
  Sender: FDA-Public Use
  Company Number: DE-BAXTER-2011BH010116

PATIENT
  Age: 75 Year
  Sex: Female
  Weight: 80 kg

DRUGS (6)
  1. EXTRANEAL [Suspect]
     Route: 033
     Dates: start: 20100101
  2. PHYSIOSOL IN PLASTIC CONTAINER [Suspect]
     Indication: PERITONEAL DIALYSIS
     Route: 033
     Dates: start: 20100101
  3. EXTRANEAL [Suspect]
     Indication: PERITONEAL DIALYSIS
     Route: 033
     Dates: start: 20100101
  4. NUTRINEAL [Suspect]
     Indication: PERITONEAL DIALYSIS
     Route: 033
     Dates: start: 20100101
  5. PHYSIOSOL IN PLASTIC CONTAINER [Suspect]
     Route: 033
     Dates: start: 20100101
  6. NUTRINEAL [Suspect]
     Route: 033
     Dates: start: 20100101

REACTIONS (4)
  - DECREASED APPETITE [None]
  - PERITONITIS BACTERIAL [None]
  - WEIGHT DECREASED [None]
  - ABDOMINAL HERNIA [None]
